FAERS Safety Report 10330075 (Version 2)
Quarter: 2014Q3

REPORT INFORMATION
  Report Type: Report from Study
  Country: US (occurrence: US)
  Receive Date: 20140721
  Receipt Date: 20140729
  Transmission Date: 20150326
  Serious: Yes (Hospitalization)
  Sender: FDA-Public Use
  Company Number: US-MERCK-1407USA007866

PATIENT
  Age: 79 Year
  Sex: Male

DRUGS (5)
  1. HYDROCORTONE [Concomitant]
     Active Substance: HYDROCORTISONE
     Indication: ADRENAL INSUFFICIENCY
     Dosage: UNK, QD, TOTAL DAILY DOSE 30 MG
     Route: 048
     Dates: start: 201402
  2. METOPROLOL [Concomitant]
     Active Substance: METOPROLOL
     Indication: ATRIAL FIBRILLATION
     Dosage: UNK, QD, TOTAL DAILY DOSE 25 MG
     Route: 048
     Dates: start: 201404
  3. MK-3475 [Suspect]
     Active Substance: PEMBROLIZUMAB
     Indication: METASTATIC MALIGNANT MELANOMA
     Dosage: 2 MG/KG, Q3W
     Route: 042
     Dates: start: 20140709
  4. ENOXAPARIN SODIUM. [Concomitant]
     Active Substance: ENOXAPARIN SODIUM
     Indication: DEEP VEIN THROMBOSIS
     Dosage: UNK, BID, TOTAL DAILY DOSE 1000 MG
     Route: 048
     Dates: start: 20140708
  5. TERBINAFINE [Concomitant]
     Active Substance: TERBINAFINE
     Indication: TINEA INFECTION
     Dosage: UNK, QD, TOTAL DAILY DOSE 250 MG
     Route: 048
     Dates: start: 20140709

REACTIONS (1)
  - Pyrexia [Recovered/Resolved]

NARRATIVE: CASE EVENT DATE: 20140710
